FAERS Safety Report 6748447-2 (Version None)
Quarter: 2010Q2

REPORT INFORMATION
  Report Type: 
  Country: None (occurrence: None)
  Receive Date: 20100527
  Receipt Date: 20100527
  Transmission Date: 20101027
  Serious: No
  Sender: FDA-Public Use
  Company Number: None

PATIENT
  Age: 65 Year
  Sex: Male
  Weight: 95.2554 kg

DRUGS (1)
  1. ARTICANE [Suspect]
     Dates: start: 20081201

REACTIONS (3)
  - MOUTH INJURY [None]
  - NERVE INJURY [None]
  - ORAL PAIN [None]
